FAERS Safety Report 8265021-X (Version None)
Quarter: 2012Q2

REPORT INFORMATION
  Report Type: 
  Country: None (occurrence: None)
  Receive Date: 20120406
  Receipt Date: 20120402
  Transmission Date: 20120825
  Serious: Yes (Other)
  Sender: FDA-Public Use
  Company Number: PHHY2011JP66470

PATIENT
  Sex: Male
  Weight: 56 kg

DRUGS (6)
  1. CALCIUM CARBONATE [Concomitant]
     Route: 048
     Dates: start: 20110112
  2. AFINITOR [Suspect]
     Indication: METASTATIC RENAL CELL CARCINOMA
     Dosage: 5 MG, DAILY
     Route: 048
     Dates: start: 20110112, end: 20110606
  3. DISOPYRAMIDE PHOSPHATE [Concomitant]
     Dates: start: 20110112
  4. BISOPROLOL FUMARATE [Concomitant]
     Route: 048
     Dates: start: 20110112
  5. AZUNOL GARGLE LIQUID [Concomitant]
     Indication: PROPHYLAXIS
     Dates: start: 20110112
  6. ALLOPURINOL [Concomitant]
     Route: 048
     Dates: start: 20110112

REACTIONS (7)
  - LYMPHOCYTE COUNT DECREASED [None]
  - C-REACTIVE PROTEIN INCREASED [None]
  - BLOOD UREA INCREASED [None]
  - MALAISE [None]
  - DECREASED APPETITE [None]
  - BLOOD CREATININE INCREASED [None]
  - EOSINOPHIL COUNT INCREASED [None]
